FAERS Safety Report 23585377 (Version 1)
Quarter: 2024Q1

REPORT INFORMATION
  Report Type: Spontaneous
  Country: US (occurrence: US)
  Receive Date: 20240301
  Receipt Date: 20240301
  Transmission Date: 20240410
  Serious: Yes (Other)
  Sender: FDA-Public Use
  Company Number: US-MYLANLABS-2024M1019591

PATIENT
  Age: 67 Year
  Sex: Male

DRUGS (8)
  1. CISPLATIN [Suspect]
     Active Substance: CISPLATIN
     Indication: Penile squamous cell carcinoma
     Dosage: UNK, CYCLE (FOUR CYCLES)
     Route: 065
  2. IFOSFAMIDE [Suspect]
     Active Substance: IFOSFAMIDE
     Indication: Penile squamous cell carcinoma
     Dosage: UNK, CYCLE (FOUR CYCLES)
     Route: 065
  3. PACLITAXEL [Suspect]
     Active Substance: PACLITAXEL
     Indication: Penile squamous cell carcinoma
     Dosage: UNK, CYCLE (FOUR CYCLES)
     Route: 065
  4. GEMCITABINE [Suspect]
     Active Substance: GEMCITABINE
     Indication: Penile squamous cell carcinoma
     Dosage: UNK, CYCLE (2 CYCLES)
     Route: 065
  5. ENFORTUMAB VEDOTIN [Concomitant]
     Active Substance: ENFORTUMAB VEDOTIN
     Indication: Penile squamous cell carcinoma
     Dosage: 1.25 MILLIGRAM/KILOGRAM, CYCLE (ON DAYS 1, 8?AND 15 OF A 28 DAY CYCLE)
     Route: 065
  6. ENFORTUMAB VEDOTIN [Concomitant]
     Active Substance: ENFORTUMAB VEDOTIN
     Dosage: UNK, TREATMENT WAS PAUSED AND LATER, COMPLETELY DISCONTINUED
     Route: 065
  7. PEMBROLIZUMAB [Concomitant]
     Active Substance: PEMBROLIZUMAB
     Indication: Penile squamous cell carcinoma
     Dosage: UNK, CYCLE (3 CYCLES)
     Route: 065
  8. PANITUMUMAB [Concomitant]
     Active Substance: PANITUMUMAB
     Indication: Penile squamous cell carcinoma
     Dosage: UNK, CYCLE (1 CYCLE)
     Route: 065

REACTIONS (2)
  - Neuropathy peripheral [Unknown]
  - Drug intolerance [Unknown]
